FAERS Safety Report 8470954-5 (Version None)
Quarter: 2012Q2

REPORT INFORMATION
  Report Type: 
  Country: None (occurrence: None)
  Receive Date: 20120323
  Receipt Date: 20111205
  Transmission Date: 20120825
  Serious: Yes (Other)
  Sender: FDA-Public Use
  Company Number: 163-21880-11082789

PATIENT
  Age: 66 Year
  Sex: Male
  Weight: 109 kg

DRUGS (6)
  1. CALCIUM + VITAMIN D (VITACAL) [Concomitant]
  2. ASPIRIN [Concomitant]
  3. MEPRON (ATOAQUONE) [Concomitant]
  4. REVLIMID [Suspect]
     Indication: MYELODYSPLASTIC SYNDROME
     Dosage: 10 MG, 1 IN 1 D, PO
     Route: 048
     Dates: start: 20110713, end: 20110720
  5. ALLOPURINOL [Concomitant]
  6. TOPROL-XL [Concomitant]

REACTIONS (1)
  - ANGIOEDEMA [None]
